FAERS Safety Report 7659900-1 (Version None)
Quarter: 2011Q3

REPORT INFORMATION
  Report Type: 
  Country: None (occurrence: None)
  Receive Date: 20110805
  Receipt Date: 20110725
  Transmission Date: 20111222
  Serious: No
  Sender: FDA-Public Use
  Company Number: US-B.I. PHARMACEUTICALS,INC./RIDGEFIELD-2011-BP-18425BP

PATIENT
  Age: 82 Year
  Sex: Female

DRUGS (9)
  1. SINGULAIR [Concomitant]
     Indication: CHRONIC OBSTRUCTIVE PULMONARY DISEASE
  2. ADVAIR DISKUS 100/50 [Concomitant]
     Indication: CHRONIC OBSTRUCTIVE PULMONARY DISEASE
     Route: 055
  3. AVAPRO [Concomitant]
     Indication: HYPERTENSION
     Dosage: 160 MG
  4. ATROVENT [Concomitant]
     Indication: HYPERSENSITIVITY
  5. KLOR-CON [Concomitant]
     Indication: SUPPLEMENTATION THERAPY
  6. WELCHOL [Concomitant]
     Indication: BLOOD CHOLESTEROL INCREASED
  7. PRADAXA [Suspect]
     Indication: ATRIAL FIBRILLATION
     Dosage: 300 MG
     Route: 048
     Dates: start: 20110723
  8. CARDIZEM [Concomitant]
     Indication: HYPERTENSION
     Dosage: 240 MG
     Route: 048
  9. LASIX [Concomitant]
     Indication: HYPERTENSION

REACTIONS (1)
  - DIZZINESS POSTURAL [None]
